FAERS Safety Report 16620239 (Version 2)
Quarter: 2019Q3

REPORT INFORMATION
  Report Type: Not Available
  Country: US (occurrence: US)
  Receive Date: 20190723
  Receipt Date: 20190903
  Transmission Date: 20191004
  Serious: No
  Sender: FDA-Public Use
  Company Number: US-NEUROCRINE BIOSCIENCES INC.-2019NBI01935

PATIENT
  Age: 65 Year
  Sex: Female

DRUGS (1)
  1. INGREZZA [Suspect]
     Active Substance: VALBENAZINE
     Indication: TARDIVE DYSKINESIA
     Route: 048
     Dates: start: 20171204

REACTIONS (5)
  - Urinary tract infection [Unknown]
  - Tongue discomfort [Unknown]
  - Vomiting [Unknown]
  - Therapeutic product effect decreased [None]
  - Nausea [Unknown]

NARRATIVE: CASE EVENT DATE: 2019
